FAERS Safety Report 6819954-9 (Version None)
Quarter: 2010Q3

REPORT INFORMATION
  Report Type: 
  Country: None (occurrence: None)
  Receive Date: 20100707
  Receipt Date: 20100629
  Transmission Date: 20110219
  Serious: Yes (Death, Hospitalization)
  Sender: FDA-Public Use
  Company Number: NL-ROCHE-712699

PATIENT
  Sex: Male

DRUGS (2)
  1. XELODA [Suspect]
     Indication: COLON CANCER
     Dosage: SCHEDULE: 2 WEEKS ON 1 WEEK REST.
     Route: 048
     Dates: start: 20100323
  2. OXALIPLATIN [Suspect]
     Indication: COLON CANCER
     Route: 042
     Dates: start: 20100323

REACTIONS (2)
  - MUCOSAL INFLAMMATION [None]
  - UROSEPSIS [None]
